FAERS Safety Report 9603678 (Version 3)
Quarter: 2013Q4

REPORT INFORMATION
  Report Type: Report from Study
  Country: IT (occurrence: IT)
  Receive Date: 20131007
  Receipt Date: 20131029
  Transmission Date: 20140711
  Serious: Yes (Other)
  Sender: FDA-Public Use
  Company Number: IT-GILEAD-2013-0084755

PATIENT
  Age: 21 Year
  Sex: Male
  Weight: 46 kg

DRUGS (3)
  1. EMTRICITABINE/TENOFOVIR DISOPROXIL FUMARATE [Suspect]
     Indication: HIV INFECTION
     Dosage: 500 MG, QD
     Route: 048
     Dates: start: 200903, end: 201007
  2. ATAZANAVIR [Suspect]
     Indication: HIV INFECTION
     Dosage: UNK
     Dates: start: 200903
  3. RITONAVIR [Suspect]
     Indication: HIV INFECTION
     Dosage: UNK
     Dates: start: 200903

REACTIONS (6)
  - Drug level increased [Unknown]
  - Genetic polymorphism [Unknown]
  - Fanconi syndrome acquired [Recovered/Resolved]
  - Myalgia [Unknown]
  - Polydipsia [Unknown]
  - Polyuria [Unknown]
